FAERS Safety Report 19886879 (Version 1)
Quarter: 2021Q3

REPORT INFORMATION
  Report Type: Spontaneous
  Country: JP (occurrence: JP)
  Receive Date: 20210927
  Receipt Date: 20210927
  Transmission Date: 20211014
  Serious: Yes (Hospitalization, Other)
  Sender: FDA-Public Use
  Company Number: JP-NEUROCRINE BIOSCIENCES INC.-2021NBI01463

PATIENT

DRUGS (11)
  1. FP?OD [Suspect]
     Active Substance: SELEGILINE HYDROCHLORIDE
     Indication: PARKINSON^S DISEASE
     Dosage: 2 DOSAGE FORM, DAILY
     Route: 048
     Dates: start: 20170518, end: 20210131
  2. REBAMIPIDE [Concomitant]
     Active Substance: REBAMIPIDE
     Dosage: UNK
     Dates: start: 20170720
  3. NEODOPASTON [Concomitant]
     Active Substance: CARBIDOPA\LEVODOPA
     Dosage: UNK
     Dates: start: 20201217
  4. GASMOTIN [Concomitant]
     Active Substance: MOSAPRIDE CITRATE
     Dosage: UNK
     Dates: start: 20130828
  5. AMITIZA [Concomitant]
     Active Substance: LUBIPROSTONE
     Dosage: UNK
     Dates: start: 20140108, end: 20210217
  6. SHAKUYAKUKANZOTO [Concomitant]
     Active Substance: HERBALS
     Dosage: UNK
     Dates: start: 20200123, end: 20210217
  7. FP?OD [Suspect]
     Active Substance: SELEGILINE HYDROCHLORIDE
     Dosage: 1 DOSAGE FORM, DAILY
     Route: 048
     Dates: start: 20210201, end: 20210217
  8. ONGENTYS [Suspect]
     Active Substance: OPICAPONE
     Indication: PARKINSON^S DISEASE
     Dosage: 25 MILLIGRAM, DAILY
     Route: 048
     Dates: start: 20201203, end: 20210120
  9. YOKUKANSAN [Concomitant]
     Active Substance: HERBALS
     Dosage: UNK
     Dates: start: 20130925
  10. NAUZELIN [Concomitant]
     Active Substance: DOMPERIDONE
     Dosage: UNK
     Dates: start: 20201217
  11. NEUPRO [Concomitant]
     Active Substance: ROTIGOTINE
     Dosage: UNK
     Dates: start: 20150716

REACTIONS (4)
  - Abnormal behaviour [Unknown]
  - Paranoia [Unknown]
  - COVID-19 [Unknown]
  - Hallucination [Recovering/Resolving]

NARRATIVE: CASE EVENT DATE: 20210112
